FAERS Safety Report 6662645-8 (Version None)
Quarter: 2010Q1

REPORT INFORMATION
  Report Type: 
  Country: None (occurrence: None)
  Receive Date: 20100329
  Receipt Date: 20100317
  Transmission Date: 20100710
  Serious: Yes (Hospitalization)
  Sender: FDA-Public Use
  Company Number: 008926

PATIENT
  Sex: Female

DRUGS (3)
  1. KEPPRA [Suspect]
     Dosage: (100MG/ML INTRAVENOUS (NOT OTHERWISE SPECIFIED))
     Route: 042
     Dates: start: 20100119, end: 20100120
  2. KEPPRA [Suspect]
     Dosage: (ORAL)
     Route: 048
     Dates: start: 20100121
  3. URBANYL (URBANYL) (NOT SPECIFIED) [Suspect]
     Dosage: (ORAL)
     Route: 048
     Dates: start: 20100118, end: 20100120

REACTIONS (2)
  - SOMNOLENCE [None]
  - URTICARIA [None]
